FAERS Safety Report 15270263 (Version 1)
Quarter: 2018Q3

REPORT INFORMATION
  Report Type: Spontaneous
  Country: US (occurrence: US)
  Receive Date: 20180726
  Receipt Date: 20180726
  Transmission Date: 20181010
  Serious: Yes (Other)
  Sender: FDA-Public Use
  Company Number: None

PATIENT
  Age: 27 Year
  Sex: Female
  Weight: 58.05 kg

DRUGS (12)
  1. TRINTELLIX [Suspect]
     Active Substance: VORTIOXETINE HYDROBROMIDE
     Indication: MAJOR DEPRESSION
     Dosage: ?          QUANTITY:30 TABLET(S);?
     Route: 048
     Dates: start: 20180301, end: 20180624
  2. NORETHINDRONE. [Concomitant]
     Active Substance: NORETHINDRONE
  3. BREO ELLIPTA [Concomitant]
     Active Substance: FLUTICASONE FUROATE\VILANTEROL TRIFENATATE
  4. LEVOTHYROXINE. [Concomitant]
     Active Substance: LEVOTHYROXINE
  5. AMITRIPTYLENE [Concomitant]
     Active Substance: AMITRIPTYLINE
  6. TRINTELLIX [Suspect]
     Active Substance: VORTIOXETINE HYDROBROMIDE
     Indication: GENERALISED ANXIETY DISORDER
     Dosage: ?          QUANTITY:30 TABLET(S);?
     Route: 048
     Dates: start: 20180301, end: 20180624
  7. CRANBERRY EXTRACT [Concomitant]
     Active Substance: CRANBERRY JUICE
  8. CLONAZEPAM. [Concomitant]
     Active Substance: CLONAZEPAM
  9. DESVENLAFAXINE. [Concomitant]
     Active Substance: DESVENLAFAXINE
  10. LITHIUM CARBONATE ER [Concomitant]
     Active Substance: LITHIUM CARBONATE
  11. ADDERALL [Concomitant]
     Active Substance: AMPHETAMINE ASPARTATE\AMPHETAMINE SULFATE\DEXTROAMPHETAMINE SACCHARATE\DEXTROAMPHETAMINE SULFATE
  12. GABAPENTIN. [Concomitant]
     Active Substance: GABAPENTIN

REACTIONS (13)
  - Fatigue [None]
  - Loss of personal independence in daily activities [None]
  - Hypophagia [None]
  - Obsessive-compulsive disorder [None]
  - Anxiety [None]
  - Crying [None]
  - Nausea [None]
  - Abdominal discomfort [None]
  - Fear [None]
  - Feeling abnormal [None]
  - Pyrexia [None]
  - Educational problem [None]
  - Suicidal ideation [None]

NARRATIVE: CASE EVENT DATE: 20180307
